FAERS Safety Report 10210738 (Version 1)
Quarter: 2014Q2

REPORT INFORMATION
  Report Type: Spontaneous
  Country: US (occurrence: None)
  Receive Date: 20140529
  Receipt Date: 20140529
  Transmission Date: 20141212
  Serious: No
  Sender: FDA-Public Use
  Company Number: None

PATIENT
  Age: 73 Year
  Sex: Male
  Weight: 100 kg

DRUGS (4)
  1. RIVAROXABAN [Suspect]
     Indication: TACHYCARDIA
  2. RIVAROXABAN [Suspect]
     Indication: ATRIAL FLUTTER
  3. RIVAROXABAN [Suspect]
     Indication: CARDIAC ABLATION
  4. RIVAROXABAN [Suspect]
     Indication: CARDIOVERSION

REACTIONS (1)
  - Presyncope [None]
